FAERS Safety Report 6646763-6 (Version None)
Quarter: 2010Q1

REPORT INFORMATION
  Report Type: 
  Country: None (occurrence: None)
  Receive Date: 20100323
  Receipt Date: 20100311
  Transmission Date: 20100710
  Serious: Yes (Life-Threatening)
  Sender: FDA-Public Use
  Company Number: JP-ROCHE-689405

PATIENT
  Sex: Female
  Weight: 43 kg

DRUGS (5)
  1. AVASTIN [Suspect]
     Indication: RECTAL CANCER METASTATIC
     Route: 041
     Dates: start: 20091216, end: 20100216
  2. ELPLAT [Suspect]
     Indication: RECTAL CANCER METASTATIC
     Route: 041
     Dates: start: 20091216, end: 20100216
  3. LEVOFOLINATE [Concomitant]
     Route: 041
     Dates: start: 20091216, end: 20100216
  4. FLUOROURACIL [Concomitant]
     Route: 040
     Dates: start: 20091216, end: 20100216
  5. FLUOROURACIL [Concomitant]
     Route: 041
     Dates: start: 20091216, end: 20100201

REACTIONS (2)
  - CALCULUS URINARY [None]
  - NON-CARDIOGENIC PULMONARY OEDEMA [None]
